FAERS Safety Report 16295835 (Version 1)
Quarter: 2019Q2

REPORT INFORMATION
  Report Type: Spontaneous
  Country: US (occurrence: US)
  Receive Date: 20190509
  Receipt Date: 20190509
  Transmission Date: 20190711
  Serious: No
  Sender: FDA-Public Use
  Company Number: US-ALKERMES INC.-ALK-2018-005236

PATIENT
  Sex: Female

DRUGS (2)
  1. VIVITROL [Suspect]
     Active Substance: NALTREXONE
     Indication: DRUG USE DISORDER
     Dosage: 380 MG, QMO
     Route: 030
     Dates: start: 201807
  2. OXYCODONE [Concomitant]
     Active Substance: OXYCODONE
     Indication: ROAD TRAFFIC ACCIDENT
     Dosage: 30 MG, UNK
     Dates: start: 2018

REACTIONS (5)
  - Malaise [Not Recovered/Not Resolved]
  - Tooth infection [Unknown]
  - Kidney infection [Unknown]
  - Product administration error [Unknown]
  - Withdrawal syndrome [Not Recovered/Not Resolved]

NARRATIVE: CASE EVENT DATE: 2018
